FAERS Safety Report 12004178 (Version 1)
Quarter: 2016Q1

REPORT INFORMATION
  Report Type: Spontaneous
  Country: US (occurrence: US)
  Receive Date: 20160204
  Receipt Date: 20160204
  Transmission Date: 20160526
  Serious: No
  Sender: FDA-Public Use
  Company Number: US-GE HEALTHCARE MEDICAL DIAGNOSTICS-OSCN-PR-1505S-0100

PATIENT
  Age: 70 Year
  Sex: Male

DRUGS (3)
  1. OMNISCAN [Suspect]
     Active Substance: GADODIAMIDE
     Indication: DIZZINESS
     Route: 042
     Dates: start: 20150513, end: 20150513
  2. TAMSULOSIN [Concomitant]
     Active Substance: TAMSULOSIN
  3. OMNISCAN [Suspect]
     Active Substance: GADODIAMIDE
     Indication: DIAGNOSTIC PROCEDURE

REACTIONS (2)
  - Pain in jaw [Recovered/Resolved]
  - Palpitations [Recovered/Resolved]

NARRATIVE: CASE EVENT DATE: 20150513
